FAERS Safety Report 9180119 (Version 1)
Quarter: 2012Q4

REPORT INFORMATION
  Report Type: 
  Country: US (occurrence: US)
  Receive Date: 20121029
  Receipt Date: 20121029
  Transmission Date: 20130627
  Serious: Yes (Death)
  Sender: FDA-Public Use
  Company Number: US-SANOFI-AVENTIS-2012SA075493

PATIENT
  Age: 66 Year
  Sex: Male

DRUGS (1)
  1. RILUTEK [Suspect]
     Route: 065

REACTIONS (1)
  - Death [Fatal]
